FAERS Safety Report 10997224 (Version 1)
Quarter: 2015Q2

REPORT INFORMATION
  Report Type: Spontaneous
  Country: US (occurrence: None)
  Receive Date: 20150407
  Receipt Date: 20150407
  Transmission Date: 20150821
  Serious: Yes (Disabling, Other)
  Sender: FDA-Public Use
  Company Number: None

PATIENT
  Age: 64 Year
  Sex: Female
  Weight: 78.02 kg

DRUGS (15)
  1. NONI [Concomitant]
  2. FISH OIL [Concomitant]
     Active Substance: FISH OIL
  3. TUMERIC [Concomitant]
  4. RESERVATROL [Concomitant]
  5. MAGNESIUM [Concomitant]
     Active Substance: MAGNESIUM
  6. VITAMIN B12 [Concomitant]
     Active Substance: CYANOCOBALAMIN
  7. VITAMIN C [Concomitant]
     Active Substance: ASCORBIC ACID
  8. CRANBERRY. [Concomitant]
     Active Substance: CRANBERRY
  9. VITAMIN D [Concomitant]
     Active Substance: CHOLECALCIFEROL
  10. CIPROFLOXACIN HCL 500MG [Suspect]
     Active Substance: CIPROFLOXACIN HYDROCHLORIDE
     Indication: URINARY TRACT INFECTION
     Dosage: 14 TABLETS
     Route: 048
     Dates: start: 20150102, end: 20150107
  11. NYSTATIN. [Concomitant]
     Active Substance: NYSTATIN
  12. ACETAMINOPHEN. [Concomitant]
     Active Substance: ACETAMINOPHEN
  13. SYNTHROID [Concomitant]
     Active Substance: LEVOTHYROXINE SODIUM
  14. GARLIC. [Concomitant]
     Active Substance: GARLIC
  15. OIL OF OREGANO [Concomitant]

REACTIONS (9)
  - Musculoskeletal stiffness [None]
  - Myalgia [None]
  - Dizziness [None]
  - Tendonitis [None]
  - Arthralgia [None]
  - Peripheral swelling [None]
  - Fatigue [None]
  - Bedridden [None]
  - Gait disturbance [None]

NARRATIVE: CASE EVENT DATE: 20150104
